FAERS Safety Report 19224237 (Version 1)
Quarter: 2021Q2

REPORT INFORMATION
  Report Type: Spontaneous
  Country: US (occurrence: US)
  Receive Date: 20210505
  Receipt Date: 20210505
  Transmission Date: 20210717
  Serious: No
  Sender: FDA-Public Use
  Company Number: US-ROCHE-2648561

PATIENT
  Age: 77 Year
  Sex: Female
  Weight: 59.93 kg

DRUGS (1)
  1. ESBRIET [Suspect]
     Active Substance: PIRFENIDONE
     Indication: IDIOPATHIC PULMONARY FIBROSIS
     Dosage: ONE TABLET THRICE DAILY FOR 1?7 DAYS, TWO TABLETS, THRICE DAILY FOR 8?14 DAYS AND THREE TABLETS, THR
     Route: 048
     Dates: start: 20200628, end: 20200814

REACTIONS (3)
  - Vomiting [Unknown]
  - Abdominal pain upper [Unknown]
  - Nausea [Unknown]

NARRATIVE: CASE EVENT DATE: 202007
